FAERS Safety Report 8166405 (Version 6)
Quarter: 2014Q1

REPORT INFORMATION
  Report Type: Spontaneous
  Country: None (occurrence: GB)
  Receive Date: 20110920
  Receipt Date: 20140102
  Transmission Date: 20141002
  Serious: Yes (Life-Threatening, Hospitalization, Disabling, Other)
  Sender: FDA-Public Use
  Company Number: GB-ACCORD-010561

PATIENT
  Age: 31 Year
  Sex: Female
  Weight: 63 kg

DRUGS (13)
  1. CLONAZEPAM [Suspect]
     Indication: SEDATION
     Dosage: DOSAGE FORM : UNSPECIFIED
     Route: 048
     Dates: start: 20110224, end: 20110410
  2. QUETIAPINE FUMARATE [Suspect]
     Indication: PSYCHOTIC DISORDER
     Dosage: UNKNOWN
     Route: 048
     Dates: start: 20110224, end: 20110506
  3. AMITRIPTYLINE [Suspect]
     Indication: MUSCLE SPASMS
     Dosage: DOSGAE FORM : UNSPECIFIED
     Route: 065
     Dates: start: 20110810
  4. TRAMADOL [Interacting]
     Indication: NECK PAIN
     Dosage: DOSAGE FORM : UNSPECIFIED, DISCONTINUED AFTRE 4 OR 5 DAYS
     Route: 048
     Dates: start: 20081201, end: 20101210
  5. LORAZEPAM [Suspect]
     Indication: SEDATION
     Dosage: DOSAGE FORM : UNSPECIFIED
     Route: 048
     Dates: start: 20110224, end: 20110410
  6. OMEPRAZOLE [Suspect]
     Indication: DYSPEPSIA
     Dosage: 20 MG PER DAY?DOSAGE FORM : UNSPECIFIED
     Route: 065
     Dates: start: 20110525
  7. DIAZEPAM [Suspect]
     Indication: MUSCLE SPASMS
     Dosage: DOSAGE FORM : UNSPECIFIED
     Route: 065
     Dates: start: 20110725
  8. MIRTAZAPINE [Suspect]
     Indication: DEPRESSION
     Dosage: DOSAGE FORM : UNSPECIFIED, 30 MG IN THE DAY AND 15 MG AT NIGHT
     Route: 048
     Dates: start: 20101007, end: 20101012
  9. SEROXAT [Suspect]
     Indication: DEPRESSION
     Dosage: 20 MG THREE TIMES PER DAY?SEROXAT WAS AGAIN STARTED FROMMAY-2011 TO 6-JUL-2011
     Route: 048
     Dates: start: 19990801, end: 201105
  10. DOMPERIDONE [Suspect]
     Indication: PRODUCT USED FOR UNKNOWN INDICATION
     Dosage: DOSAGE FORM : UNSPECIFIED
  11. PROCYCLIDINE [Suspect]
     Indication: EXTRAPYRAMIDAL DISORDER
     Dosage: PROCYCLIDINE ALSO TAKEN FROM 1995 TO 1996 FOR OCULOGYRIC CRISIS?DOSAGE FORM : UNSPECIFIED
     Route: 048
     Dates: start: 20110324, end: 20110506
  12. PAROXETIN [Interacting]
     Indication: DEPRESSION
     Route: 048
     Dates: start: 19990801, end: 20110706
  13. CODEINE [Suspect]
     Indication: ANALGESIC THERAPY
     Dosage: DOSAGE FORM : UNSPECIFIED, 15-30 MG
     Route: 048
     Dates: start: 20110615, end: 20110723

REACTIONS (11)
  - Serotonin syndrome [Not Recovered/Not Resolved]
  - Exposure during pregnancy [Unknown]
  - Drug interaction [Unknown]
  - Toxicity to various agents [Unknown]
  - Neuroleptic malignant syndrome [Unknown]
  - Schizophrenia [Unknown]
  - Suicidal ideation [Not Recovered/Not Resolved]
  - H1N1 influenza [Unknown]
  - Premature labour [Unknown]
  - Drug withdrawal syndrome [Unknown]
  - Off label use [Unknown]
